FAERS Safety Report 23099918 (Version 1)
Quarter: 2023Q4

REPORT INFORMATION
  Report Type: Spontaneous
  Country: US (occurrence: None)
  Receive Date: 20231023
  Receipt Date: 20231023
  Transmission Date: 20240110
  Serious: Yes (Other)
  Sender: FDA-Public Use
  Company Number: None

PATIENT
  Age: 59 Year
  Sex: Female
  Weight: 70.65 kg

DRUGS (2)
  1. SEGLENTIS [Suspect]
     Active Substance: CELECOXIB\TRAMADOL HYDROCHLORIDE
     Indication: Procedural pain
     Dosage: OTHER QUANTITY : 2 CAPSULE(S);?FREQUENCY : EVERY 12 HOURS;?
     Route: 048
     Dates: start: 20231013, end: 20231020
  2. SERTRALINE HYDROCHLORIDE [Concomitant]
     Active Substance: SERTRALINE HYDROCHLORIDE

REACTIONS (11)
  - Nausea [None]
  - Confusional state [None]
  - Fatigue [None]
  - Anxiety [None]
  - Feeling hot [None]
  - Headache [None]
  - Depression [None]
  - Chills [None]
  - Therapy cessation [None]
  - Asthenia [None]
  - Dry mouth [None]

NARRATIVE: CASE EVENT DATE: 20231020
